FAERS Safety Report 6958625-5 (Version None)
Quarter: 2010Q3

REPORT INFORMATION
  Report Type: 
  Country: None (occurrence: None)
  Receive Date: 20100817
  Receipt Date: 20090731
  Transmission Date: 20110219
  Serious: No
  Sender: FDA-Public Use
  Company Number: 20097014

PATIENT
  Sex: Female

DRUGS (1)
  1. LIORESAL [Suspect]
     Indication: MUSCLE SPASTICITY
     Dosage: 844.3 MCG, DAILY, INTRATHECAL
     Route: 037

REACTIONS (9)
  - ANXIETY [None]
  - ATAXIA [None]
  - HEADACHE [None]
  - HYPERHIDROSIS [None]
  - MUSCLE SPASTICITY [None]
  - NAUSEA [None]
  - PRURITUS [None]
  - PYREXIA [None]
  - WITHDRAWAL SYNDROME [None]
